FAERS Safety Report 5007365-0 (Version None)
Quarter: 2006Q2

REPORT INFORMATION
  Report Type: 
  Country: None (occurrence: None)
  Receive Date: 20060517
  Receipt Date: 20060503
  Transmission Date: 20061013
  Serious: Yes (Life-Threatening)
  Sender: FDA-Public Use
  Company Number: 2006BH009265

PATIENT
  Age: 8 Year
  Sex: Male
  Weight: 29 kg

DRUGS (5)
  1. SEVOFLURANE [Suspect]
     Indication: ANAESTHESIA
     Dosage: 8 PCT; INH
     Route: 055
  2. MIDAZOLAM HCL [Concomitant]
  3. FENTANYL [Concomitant]
  4. ATRACURIUM BESYLATE [Concomitant]
  5. NADOLOL [Concomitant]

REACTIONS (4)
  - HAEMODYNAMIC INSTABILITY [None]
  - PROCEDURAL COMPLICATION [None]
  - TORSADE DE POINTES [None]
  - VENTRICULAR EXTRASYSTOLES [None]
